FAERS Safety Report 5098530-5 (Version None)
Quarter: 2006Q3

REPORT INFORMATION
  Report Type: 
  Country: None (occurrence: None)
  Receive Date: 20060906
  Receipt Date: 20060217
  Transmission Date: 20061208
  Serious: No
  Sender: FDA-Public Use
  Company Number: US-GLAXOSMITHKLINE-A0594174A

PATIENT
  Age: 64 Year
  Sex: Female
  Weight: 85 kg

DRUGS (4)
  1. REQUIP [Suspect]
     Indication: RESTLESS LEGS SYNDROME
     Dosage: .25MG PER DAY
     Route: 048
     Dates: start: 20060214, end: 20060201
  2. PROTONIX [Concomitant]
  3. ASPIRIN [Concomitant]
  4. MOBIC [Concomitant]

REACTIONS (3)
  - DRUG INEFFECTIVE [None]
  - INSOMNIA [None]
  - RESTLESS LEGS SYNDROME [None]
